FAERS Safety Report 6815646-0 (Version None)
Quarter: 2010Q3

REPORT INFORMATION
  Report Type: 
  Country: None (occurrence: None)
  Receive Date: 20100702
  Receipt Date: 20100624
  Transmission Date: 20110219
  Serious: Yes (Hospitalization, Other)
  Sender: FDA-Public Use
  Company Number: BR-ABBOTT-10P-020-0635684-00

PATIENT
  Sex: Female
  Weight: 67 kg

DRUGS (8)
  1. HUMIRA [Suspect]
     Indication: RHEUMATOID ARTHRITIS
     Route: 058
     Dates: start: 20091001, end: 20100617
  2. DORILAX [Concomitant]
     Indication: PAIN
     Dosage: 30MG/125MG/30MG/50MG, 1 EVERY 8 HOURS
     Route: 048
     Dates: start: 20100322
  3. METHOTREXATE [Concomitant]
     Indication: RHEUMATOID ARTHRITIS
     Route: 048
     Dates: start: 20060101
  4. FOLIC ACID [Concomitant]
     Indication: VITAMIN SUPPLEMENTATION
     Route: 048
     Dates: start: 20060101
  5. DEFLAZACORT [Concomitant]
     Indication: RHEUMATOID ARTHRITIS
     Route: 048
     Dates: start: 20100101
  6. PIROXICAM [Concomitant]
     Indication: PAIN
     Route: 048
     Dates: start: 20100101, end: 20100401
  7. ATENOLOL [Concomitant]
     Indication: BLOOD PRESSURE
     Route: 048
     Dates: start: 20090101
  8. CYCLOBENZAPRINE [Concomitant]
     Indication: MUSCLE RELAXANT THERAPY
     Route: 048
     Dates: start: 20070101

REACTIONS (9)
  - GENERALISED OEDEMA [None]
  - MUSCLE SPASMS [None]
  - OEDEMA PERIPHERAL [None]
  - PAIN IN EXTREMITY [None]
  - PERIPHERAL ISCHAEMIA [None]
  - RHEUMATOID ARTHRITIS [None]
  - SYNOVITIS [None]
  - VASCULITIS [None]
  - WEIGHT DECREASED [None]
